FAERS Safety Report 22270079 (Version 4)
Quarter: 2024Q1

REPORT INFORMATION
  Report Type: Report from Study
  Country: US (occurrence: US)
  Receive Date: 20230501
  Receipt Date: 20240209
  Transmission Date: 20240409
  Serious: No
  Sender: FDA-Public Use
  Company Number: US-002147023-NVSC2023US099514

PATIENT
  Sex: Female

DRUGS (1)
  1. KISQALI [Suspect]
     Active Substance: RIBOCICLIB
     Indication: Product used for unknown indication
     Dosage: UNK
     Route: 065

REACTIONS (9)
  - Lethargy [Unknown]
  - Haematoma [Unknown]
  - Fall [Unknown]
  - Arthralgia [Unknown]
  - Dizziness [Unknown]
  - Diarrhoea [Recovered/Resolved]
  - Back pain [Unknown]
  - Constipation [Unknown]
  - Muscular weakness [Unknown]
